FAERS Safety Report 8965708 (Version 2)
Quarter: 2013Q2

REPORT INFORMATION
  Report Type: Spontaneous
  Country: DE (occurrence: None)
  Receive Date: 20121206
  Receipt Date: 20130529
  Transmission Date: 20140414
  Serious: Yes (Other)
  Sender: FDA-Public Use
  Company Number: DE-1195526

PATIENT
  Age: 38 Year
  Sex: Male

DRUGS (4)
  1. NATACYN [Suspect]
     Indication: KERATITIS FUNGAL
     Dosage: (1 GTT   Q1H OPHTHALMIC)?1 GTT 1X/30 MINUTES OPHTHALMIC
     Route: 047
  2. PROPAMIDINE [Suspect]
     Indication: KERATITIS FUNGAL
     Dosage: ( 1 %  Q1H)?
  3. LEVOFLOXACIN [Suspect]
     Indication: KERATITIS FUNGAL
     Dosage: (1 DF  5X/DAY)?
  4. VORICONAZOLE [Suspect]
     Indication: KERATITIS FUNGAL
     Dosage: (1 %  Q1H)?

REACTIONS (2)
  - Keratitis fungal [None]
  - Condition aggravated [None]
